FAERS Safety Report 21363345 (Version 2)
Quarter: 2022Q3

REPORT INFORMATION
  Report Type: Report from Study
  Country: US (occurrence: US)
  Receive Date: 20220922
  Receipt Date: 20220930
  Transmission Date: 20221027
  Serious: No
  Sender: FDA-Public Use
  Company Number: US-ABBVIE-4128767

PATIENT
  Sex: Female

DRUGS (3)
  1. SKYRIZI [Suspect]
     Active Substance: RISANKIZUMAB-RZAA
     Indication: Crohn^s disease
     Route: 058
  2. COVID-19 vaccine [Concomitant]
     Indication: COVID-19 immunisation
     Dosage: FREQUENCY: ONE IN ONE IN ONCE
     Route: 030
  3. COVID-19 vaccine [Concomitant]
     Indication: COVID-19 immunisation
     Dosage: FREQUENCY: ONE IN ONE IN ONCE
     Route: 030

REACTIONS (2)
  - Sinusitis [Recovering/Resolving]
  - Nasopharyngitis [Recovering/Resolving]
